FAERS Safety Report 15964134 (Version 1)
Quarter: 2019Q1

REPORT INFORMATION
  Report Type: Spontaneous
  Country: FR (occurrence: FR)
  Receive Date: 20190214
  Receipt Date: 20190214
  Transmission Date: 20190417
  Serious: Yes (Other)
  Sender: FDA-Public Use
  Company Number: FR-MYLANLABS-2019M1013400

PATIENT
  Age: 51 Year
  Sex: Male

DRUGS (2)
  1. RAMIPRIL MYLAN GENERICS [Suspect]
     Active Substance: RAMIPRIL
     Indication: HYPERTENSION
     Dosage: 5 MILLIGRAM
     Dates: start: 201809
  2. RAMIPRIL MYLAN GENERICS [Suspect]
     Active Substance: RAMIPRIL
     Dosage: 10 MILLIGRAM
     Dates: start: 201809

REACTIONS (1)
  - Renal mass [Unknown]
